FAERS Safety Report 14798659 (Version 1)
Quarter: 2018Q2

REPORT INFORMATION
  Report Type: Report from Study
  Country: US (occurrence: US)
  Receive Date: 20180424
  Receipt Date: 20180424
  Transmission Date: 20180711
  Serious: Yes (Other)
  Sender: FDA-Public Use
  Company Number: US-ROCHE-2112539

PATIENT
  Sex: Female

DRUGS (2)
  1. XOLAIR [Suspect]
     Active Substance: OMALIZUMAB
     Indication: PRODUCT USED FOR UNKNOWN INDICATION
     Dosage: ONOING: UNKNOWN
     Route: 065
  2. PREDNISONE. [Concomitant]
     Active Substance: PREDNISONE
     Dosage: ONGOING: UNKNOWN
     Route: 065

REACTIONS (4)
  - Osteonecrosis [Not Recovered/Not Resolved]
  - Arthropathy [Not Recovered/Not Resolved]
  - Hernia [Unknown]
  - Hernia perforation [Not Recovered/Not Resolved]
